FAERS Safety Report 5568794-X (Version None)
Quarter: 2007Q4

REPORT INFORMATION
  Report Type: 
  Country: None (occurrence: None)
  Receive Date: 20071220
  Receipt Date: 20070123
  Transmission Date: 20080405
  Serious: No
  Sender: FDA-Public Use
  Company Number: A0635507A

PATIENT
  Age: 70 Year
  Sex: Male
  Weight: 100.9 kg

DRUGS (4)
  1. AVODART [Suspect]
     Indication: BENIGN PROSTATIC HYPERPLASIA
     Dosage: .5MG PER DAY
     Route: 048
  2. CARDURA [Concomitant]
     Dosage: 4MG PER DAY
     Route: 048
  3. SYNTHROID [Concomitant]
  4. LEVOXYL [Concomitant]
     Dosage: 200MCG PER DAY
     Route: 048

REACTIONS (1)
  - DRUG INEFFECTIVE [None]
